FAERS Safety Report 10023088 (Version 1)
Quarter: 2014Q1

REPORT INFORMATION
  Report Type: Report from Study
  Country: US (occurrence: US)
  Receive Date: 20140319
  Receipt Date: 20140319
  Transmission Date: 20141002
  Serious: Yes (Other)
  Sender: FDA-Public Use
  Company Number: US-BRISTOL-MYERS SQUIBB COMPANY-20384517

PATIENT
  Sex: Female

DRUGS (1)
  1. ERBITUX [Suspect]
     Indication: COLON CANCER
     Dosage: DRUG INTERRUPTED ON 15JULY2013?REINTRODUCED ON AUG/SEP 2013?LAST DOSE ON 25FEB14

REACTIONS (4)
  - Ileostomy [Unknown]
  - Skin exfoliation [Unknown]
  - Nail discolouration [Unknown]
  - Skin fissures [Unknown]
